FAERS Safety Report 12589967 (Version 1)
Quarter: 2016Q3

REPORT INFORMATION
  Report Type: Report from Study
  Country: DO (occurrence: DO)
  Receive Date: 20160725
  Receipt Date: 20160725
  Transmission Date: 20161109
  Serious: Yes (Other)
  Sender: FDA-Public Use
  Company Number: DO-ABBVIE-16P-279-1683160-00

PATIENT
  Sex: Male

DRUGS (1)
  1. ZEMPLAR [Suspect]
     Active Substance: PARICALCITOL
     Indication: PRODUCT USED FOR UNKNOWN INDICATION
     Dosage: 1 AMPOULE OF ZEMPLAR WAS ADMINISTERED IN EACH SESSION OF HEMODIALYSIS
     Route: 042
     Dates: start: 20151104

REACTIONS (1)
  - Arteriovenous fistula site infection [Recovering/Resolving]
